FAERS Safety Report 8477257-3 (Version None)
Quarter: 2012Q2

REPORT INFORMATION
  Report Type: 
  Country: None (occurrence: None)
  Receive Date: 20120622
  Receipt Date: 20120606
  Transmission Date: 20120825
  Serious: Yes (Hospitalization)
  Sender: FDA-Public Use
  Company Number: 2012-287

PATIENT
  Age: 54 Year
  Sex: Female

DRUGS (19)
  1. ALLOPURINOL [Concomitant]
  2. METOPROLOL SUCCINATE [Concomitant]
  3. ZOLPIDEM TARTRATE [Concomitant]
  4. SIMVASTATIN [Concomitant]
  5. FAMOTIDINE [Concomitant]
  6. AMLODIPINE [Concomitant]
  7. BENZTROPINE MESYLATE [Concomitant]
  8. HALOPERIDOL [Concomitant]
  9. SENNA PLUS (SENNA ALEXANDRINA) [Concomitant]
  10. LITHIUM CARBONATE [Concomitant]
  11. OYSTER SHELL CALCIUM (CALCIUM CARBONATE) [Concomitant]
  12. TRAVATAN Z [Concomitant]
  13. FAZACLO ODT [Suspect]
     Indication: SCHIZOPHRENIA
     Dosage: 450-700 MG, QD, ORAL
     Route: 048
     Dates: start: 20110904
  14. VITAMIN A + D (ERGOCALCIFEROL, RETINOL) [Concomitant]
  15. DOCUSATE SODIUM (DOCUSATE SODIUM) [Concomitant]
  16. VITAMIN D [Concomitant]
  17. LORAZEPAM [Concomitant]
  18. MAGNESIUM HYDROXIDE TAB [Concomitant]
  19. ASPIRIN [Concomitant]

REACTIONS (3)
  - BALANCE DISORDER [None]
  - WEIGHT DECREASED [None]
  - AGITATION [None]
